FAERS Safety Report 4556742-0 (Version None)
Quarter: 2005Q1

REPORT INFORMATION
  Report Type: 
  Country: None (occurrence: None)
  Receive Date: 20050114
  Receipt Date: 20050104
  Transmission Date: 20050727
  Serious: Yes (Hospitalization)
  Sender: FDA-Public Use
  Company Number: 050001

PATIENT
  Age: 62 Year
  Sex: Male

DRUGS (9)
  1. HALFLYTELY [Suspect]
     Indication: COLONOSCOPY
     Dosage: 20 MG/2 L
     Dates: start: 20050104
  2. ZOCOR [Concomitant]
  3. LISINOPRIL [Concomitant]
  4. TOPOROL [Concomitant]
  5. PLAVIX [Concomitant]
  6. ASPIRIN [Concomitant]
  7. FOLIC ACID [Concomitant]
  8. FISH OIL [Concomitant]
  9. NAPROXIN [Concomitant]

REACTIONS (3)
  - DYSPNOEA [None]
  - HYPOTENSION [None]
  - URTICARIA [None]
